FAERS Safety Report 19291960 (Version 2)
Quarter: 2021Q2

REPORT INFORMATION
  Report Type: Spontaneous
  Country: JP (occurrence: JP)
  Receive Date: 20210524
  Receipt Date: 20210531
  Transmission Date: 20210717
  Serious: Yes (Hospitalization, Other)
  Sender: FDA-Public Use
  Company Number: JP-UCBSA-2021022829

PATIENT
  Age: 27 Year
  Sex: Female

DRUGS (2)
  1. VIMPAT [Suspect]
     Active Substance: LACOSAMIDE
     Indication: EPILEPSY
     Dosage: 300MG DAILY (100MG MORNING AND 200MG EVENING)
     Route: 048
     Dates: start: 20201001
  2. E KEPPRA [Suspect]
     Active Substance: LEVETIRACETAM
     Indication: EPILEPSY
     Dosage: 500 MILLIGRAM, 2X/DAY (BID)
     Route: 048
     Dates: start: 20201001

REACTIONS (3)
  - Syncope [Unknown]
  - Maternal exposure during pregnancy [Unknown]
  - Epilepsy [Unknown]

NARRATIVE: CASE EVENT DATE: 202101
